FAERS Safety Report 9906523 (Version 3)
Quarter: 2014Q1

REPORT INFORMATION
  Report Type: Spontaneous
  Country: IT (occurrence: IT)
  Receive Date: 20140218
  Receipt Date: 20140227
  Transmission Date: 20141002
  Serious: Yes (Hospitalization)
  Sender: FDA-Public Use
  Company Number: IT-TEVA-462639ISR

PATIENT
  Age: 72 Year
  Sex: Female

DRUGS (5)
  1. LEVOFLOXACIN [Suspect]
     Indication: PRODUCT USED FOR UNKNOWN INDICATION
     Dosage: 10 DF TOTAL
     Route: 048
     Dates: start: 20131230, end: 20140108
  2. ENALAPRIL MALEATE [Suspect]
     Indication: HYPERTENSION
     Route: 048
     Dates: start: 20050101, end: 20140109
  3. MODURETIC - 5 MG + 50 MG COMPRESSE MSD ITALIA S.R.L. [Suspect]
     Indication: HYPERTENSION
     Dosage: 1 DOSAGE FORM = AMILORIDE HYDROCHLORIDE 5MG + HYDROCHLOROTHIAZIDE 50MG
     Route: 048
     Dates: start: 20050101, end: 20140109
  4. COUMADIN - 5 MG COMPRESSE [Concomitant]
     Indication: CEREBRAL ISCHAEMIA
     Dates: start: 20020101, end: 20140111
  5. EUTIROX - 100 MICROGRAMMI COMPRESSE [Concomitant]
     Indication: HYPOTHYROIDISM

REACTIONS (4)
  - Hyperkalaemia [Recovered/Resolved]
  - Hyponatraemia [Recovered/Resolved]
  - Hypotension [Recovered/Resolved]
  - Renal failure acute [Recovered/Resolved]
